APPROVED DRUG PRODUCT: ROSUVASTATIN CALCIUM
Active Ingredient: ROSUVASTATIN CALCIUM
Strength: EQ 20MG BASE
Dosage Form/Route: TABLET;ORAL
Application: A207296 | Product #003
Applicant: MACLEODS PHARMACEUTICALS LTD
Approved: Nov 6, 2024 | RLD: No | RS: No | Type: DISCN